FAERS Safety Report 22311198 (Version 1)
Quarter: 2023Q2

REPORT INFORMATION
  Report Type: Spontaneous
  Country: US (occurrence: US)
  Receive Date: 20230511
  Receipt Date: 20230511
  Transmission Date: 20230722
  Serious: No
  Sender: FDA-Public Use
  Company Number: US-PFIZER INC-PV202200092059

PATIENT
  Age: 73 Year
  Sex: Female
  Weight: 65.77 kg

DRUGS (1)
  1. IBRANCE [Suspect]
     Active Substance: PALBOCICLIB
     Indication: Breast cancer metastatic
     Dosage: 75 MG, DAILY FOR 21 DAYS AND OFF FOR WEEK
     Dates: start: 202209, end: 2023

REACTIONS (2)
  - Neoplasm progression [Unknown]
  - Product dispensing error [Unknown]
